FAERS Safety Report 4557176-5 (Version None)
Quarter: 2005Q1

REPORT INFORMATION
  Report Type: 
  Country: None (occurrence: None)
  Receive Date: 20050118
  Receipt Date: 20050111
  Transmission Date: 20050727
  Serious: Yes (Disabling, Other)
  Sender: FDA-Public Use
  Company Number: 200410491BFR

PATIENT
  Age: 33 Year
  Sex: Female
  Weight: 59 kg

DRUGS (16)
  1. MOXIFLOXACIN HYDROCHLORIDE [Suspect]
     Indication: DISSEMINATED TUBERCULOSIS
     Dosage: 400 MG, TOTAL DAILY, ORAL
     Route: 048
     Dates: start: 20040729, end: 20040928
  2. ETHAMBUTOL HCL [Suspect]
     Indication: DISSEMINATED TUBERCULOSIS
     Dosage: 1000 MG, TOTAL DAILY, ORAL
     Route: 048
     Dates: start: 20040521, end: 20040923
  3. PIRILENE [Concomitant]
  4. AMIKIN [Concomitant]
  5. RIMIFON [Concomitant]
  6. RIFADIN [Concomitant]
  7. RIBAFUTINE [Concomitant]
  8. COMBIVIR [Concomitant]
  9. NORVIR [Concomitant]
  10. INVIRASE [Concomitant]
  11. INSULIN [Concomitant]
  12. NEXIUM [Concomitant]
  13. CLONAZEPAM [Concomitant]
  14. CORTANCYL [Concomitant]
  15. BACTRIM DS [Concomitant]
  16. DIFFU K [Concomitant]

REACTIONS (1)
  - OPTIC NEURITIS RETROBULBAR [None]
